FAERS Safety Report 9095950 (Version 1)
Quarter: 2013Q1

REPORT INFORMATION
  Report Type: Spontaneous
  Country: FR (occurrence: FR)
  Receive Date: 20130219
  Receipt Date: 20130219
  Transmission Date: 20140127
  Serious: Yes (Other)
  Sender: FDA-Public Use
  Company Number: FR-UCBSA-078336

PATIENT
  Sex: Female

DRUGS (3)
  1. VIMPAT [Suspect]
     Indication: EPILEPSY
     Dosage: DAILY DOSE : 250MG
     Route: 048
     Dates: start: 200912
  2. KEPPRA [Suspect]
     Indication: EPILEPSY
     Dosage: DAILY DOSE: 1G
     Route: 048
     Dates: start: 200601
  3. LYRICA [Concomitant]
     Indication: EPILEPSY
     Dosage: DAILY DOSE: 100MG
     Route: 048
     Dates: start: 200907, end: 201210

REACTIONS (2)
  - Abortion spontaneous [Unknown]
  - Pregnancy [Recovered/Resolved]
